FAERS Safety Report 9402086 (Version 1)
Quarter: 2013Q3

REPORT INFORMATION
  Report Type: Spontaneous
  Country: US (occurrence: US)
  Receive Date: 20130716
  Receipt Date: 20130716
  Transmission Date: 20140515
  Serious: No
  Sender: FDA-Public Use
  Company Number: US-GLAXOSMITHKLINE-A0978317A

PATIENT
  Age: 47 Year
  Sex: Female

DRUGS (3)
  1. NICORETTE MINIS MINT 2 MG [Suspect]
     Indication: EX-TOBACCO USER
     Dates: start: 20120505, end: 20120519
  2. ZIAC [Concomitant]
  3. PAXIL [Concomitant]

REACTIONS (1)
  - Blood pressure increased [Recovered/Resolved]
